FAERS Safety Report 11720903 (Version 2)
Quarter: 2015Q4

REPORT INFORMATION
  Report Type: Report from Study
  Country: US (occurrence: US)
  Receive Date: 20151110
  Receipt Date: 20151221
  Transmission Date: 20160304
  Serious: Yes (Other)
  Sender: FDA-Public Use
  Company Number: US-SA-2015SA134477

PATIENT
  Age: 59 Year
  Sex: Male

DRUGS (8)
  1. ETHANOL [Concomitant]
     Active Substance: ALCOHOL
     Dosage: HAD SOME ETOH THROUGHOUT THECOURSE OF THE WEEK.
  2. ALIROCUMAB PREFILLED PEN [Concomitant]
     Active Substance: ALIROCUMAB
     Route: 058
     Dates: start: 20150821
  3. CIPRO [Concomitant]
     Active Substance: CIPROFLOXACIN HYDROCHLORIDE
     Indication: DIVERTICULITIS
  4. ATENOLOL. [Concomitant]
     Active Substance: ATENOLOL
  5. METRONIDAZOLE. [Concomitant]
     Active Substance: METRONIDAZOLE
     Indication: DIVERTICULITIS
  6. LOSARTAN. [Concomitant]
     Active Substance: LOSARTAN
  7. PRALUENT [Suspect]
     Active Substance: ALIROCUMAB
     Indication: HYPERCHOLESTEROLAEMIA
     Route: 058
     Dates: start: 20150821
  8. PRALUENT [Suspect]
     Active Substance: ALIROCUMAB
     Indication: CORONARY ARTERY BYPASS
     Route: 058
     Dates: start: 20150821

REACTIONS (8)
  - Abdominal pain [Not Recovered/Not Resolved]
  - Pruritus [Not Recovered/Not Resolved]
  - Pancreatitis [Unknown]
  - Photosensitivity reaction [Not Recovered/Not Resolved]
  - Heart rate decreased [Unknown]
  - Pancreatitis [Unknown]
  - Erythema [Not Recovered/Not Resolved]
  - Rash [Not Recovered/Not Resolved]

NARRATIVE: CASE EVENT DATE: 2015
